FAERS Safety Report 12267888 (Version 2)
Quarter: 2016Q2

REPORT INFORMATION
  Report Type: Spontaneous
  Country: FR (occurrence: FR)
  Receive Date: 20160414
  Receipt Date: 20160418
  Transmission Date: 20160815
  Serious: Yes (Hospitalization, Other)
  Sender: FDA-Public Use
  Company Number: FR-PFIZER INC-2016185633

PATIENT
  Age: 37 Year
  Sex: Female

DRUGS (14)
  1. XYLOCAINE [Suspect]
     Active Substance: LIDOCAINE HYDROCHLORIDE
     Dosage: 1 DF, MONTHLY
     Route: 065
     Dates: start: 20160112, end: 20160112
  2. AMOXICILLIN. [Concomitant]
     Active Substance: AMOXICILLIN
     Indication: SINUSITIS
     Dosage: UNK
     Dates: start: 20160130, end: 20160207
  3. SALAZOPYRINE [Suspect]
     Active Substance: SULFASALAZINE
     Indication: ANKYLOSING SPONDYLITIS
     Dosage: 1 DF, 1X/DAY
     Route: 048
     Dates: start: 20160112, end: 20160207
  4. ALTIM /00371202/ [Suspect]
     Active Substance: TIMOLOL MALEATE
     Indication: PAIN
     Dosage: 1 DF, SINGLE
     Route: 014
     Dates: start: 20160112, end: 20160112
  5. PREDNISONE. [Concomitant]
     Active Substance: PREDNISONE
     Indication: ANKYLOSING SPONDYLITIS
     Dosage: UNK
     Dates: start: 20160112, end: 20160207
  6. AMOXICILLIN. [Concomitant]
     Active Substance: AMOXICILLIN
     Indication: HEADACHE
  7. SOLUPRED /00016217/ [Concomitant]
     Active Substance: PREDNISOLONE
     Indication: SINUSITIS
     Dosage: UNK
     Dates: start: 20160130, end: 20160202
  8. EUPANTOL [Suspect]
     Active Substance: PANTOPRAZOLE SODIUM
     Indication: GASTROOESOPHAGEAL REFLUX DISEASE
     Dosage: 1 DF, 1X/DAY
     Route: 048
     Dates: start: 20160112, end: 20160207
  9. DIFFU K [Concomitant]
     Active Substance: POTASSIUM CHLORIDE
     Indication: ANKYLOSING SPONDYLITIS
     Dosage: UNK
     Dates: start: 20160112, end: 20160207
  10. PARIET [Suspect]
     Active Substance: RABEPRAZOLE SODIUM
     Indication: GASTROOESOPHAGEAL REFLUX DISEASE
     Dosage: 1 DF, 1X/DAY
     Route: 048
     Dates: start: 2013, end: 20160112
  11. FIVASA /00747601/ [Concomitant]
     Active Substance: MESALAMINE
     Dosage: UNK
     Dates: end: 20160204
  12. AMOXICILLIN. [Concomitant]
     Active Substance: AMOXICILLIN
     Indication: PYREXIA
  13. SOLUPRED /00016217/ [Concomitant]
     Active Substance: PREDNISOLONE
     Indication: PYREXIA
  14. SOLUPRED /00016217/ [Concomitant]
     Active Substance: PREDNISOLONE
     Indication: HEADACHE

REACTIONS (1)
  - Drug reaction with eosinophilia and systemic symptoms [Recovered/Resolved]

NARRATIVE: CASE EVENT DATE: 20160205
